FAERS Safety Report 8086906-3 (Version None)
Quarter: 2012Q1

REPORT INFORMATION
  Report Type: 
  Country: None (occurrence: None)
  Receive Date: 20120128
  Receipt Date: 20110615
  Transmission Date: 20120608
  Serious: No
  Sender: FDA-Public Use
  Company Number: US-ABBOTT-11P-163-0732479-00

PATIENT
  Sex: Male
  Weight: 134.84 kg

DRUGS (2)
  1. HUMIRA [Suspect]
     Indication: RHEUMATOID ARTHRITIS
     Dates: start: 20080101
  2. HUMIRA [Suspect]
     Indication: OSTEOARTHRITIS

REACTIONS (2)
  - INFLUENZA [None]
  - NASOPHARYNGITIS [None]
